FAERS Safety Report 11170557 (Version 1)
Quarter: 2015Q2

REPORT INFORMATION
  Report Type: Report from Study
  Country: LV (occurrence: LV)
  Receive Date: 20150608
  Receipt Date: 20150608
  Transmission Date: 20150821
  Serious: Yes (Other)
  Sender: FDA-Public Use
  Company Number: LV-BIOGENIDEC-2015BI076891

PATIENT
  Sex: Female
  Weight: 50 kg

DRUGS (2)
  1. LAMICTAL [Concomitant]
     Active Substance: LAMOTRIGINE
  2. TYSABRI [Suspect]
     Active Substance: NATALIZUMAB
     Indication: PRODUCT USED FOR UNKNOWN INDICATION
     Route: 042
     Dates: start: 20121030, end: 201412

REACTIONS (2)
  - Renal abscess [Recovered/Resolved]
  - Urinary tract infection [Recovered/Resolved]
